FAERS Safety Report 14204139 (Version 1)
Quarter: 2017Q4

REPORT INFORMATION
  Report Type: Spontaneous
  Country: US (occurrence: US)
  Receive Date: 20171117
  Receipt Date: 20171117
  Transmission Date: 20180321
  Serious: Yes (Other)
  Sender: FDA-Public Use
  Company Number: None

PATIENT
  Sex: Male
  Weight: 72 kg

DRUGS (4)
  1. PROBIOTICS [Concomitant]
     Active Substance: PROBIOTICS NOS
  2. VITAMIN D [Concomitant]
     Active Substance: CHOLECALCIFEROL
  3. ZINC. [Concomitant]
     Active Substance: ZINC
  4. FINCOM [Suspect]
     Active Substance: FINASTERIDE
     Indication: ALOPECIA
     Route: 048
     Dates: start: 20170515, end: 20171111

REACTIONS (3)
  - Loss of libido [None]
  - Feeling abnormal [None]
  - Erectile dysfunction [None]

NARRATIVE: CASE EVENT DATE: 20171111
